FAERS Safety Report 8846801 (Version 1)
Quarter: 2012Q4

REPORT INFORMATION
  Report Type: 
  Country: US (occurrence: US)
  Receive Date: 20121018
  Receipt Date: 20121018
  Transmission Date: 20130627
  Serious: No
  Sender: FDA-Public Use
  Company Number: US-PFIZER INC-2012257920

PATIENT
  Age: 66 Year
  Sex: Female

DRUGS (1)
  1. PROPANOLOL HCL [Suspect]
     Indication: HYPERTENSION
     Dosage: 60 mg, 2x/day
     Route: 048
     Dates: start: 201209

REACTIONS (2)
  - Oedema peripheral [Unknown]
  - Malaise [Unknown]
